FAERS Safety Report 9414665 (Version 1)
Quarter: 2013Q3

REPORT INFORMATION
  Report Type: Spontaneous
  Country: FR (occurrence: FR)
  Receive Date: 20130723
  Receipt Date: 20130723
  Transmission Date: 20140515
  Serious: Yes (Disabling, Other)
  Sender: FDA-Public Use
  Company Number: PHHY2013FR077302

PATIENT
  Age: 72 Year
  Sex: Female

DRUGS (2)
  1. GLIVEC [Suspect]
     Indication: GASTROINTESTINAL STROMAL TUMOUR
     Dosage: 400 MG, QD
     Route: 048
     Dates: start: 20120123, end: 20120524
  2. GLIVEC [Suspect]
     Dosage: 300 MG, QD
     Route: 048
     Dates: start: 20120629, end: 20130121

REACTIONS (4)
  - Polymyalgia rheumatica [Recovered/Resolved with Sequelae]
  - Asthenia [Unknown]
  - Pancytopenia [Not Recovered/Not Resolved]
  - Rash [Unknown]
